FAERS Safety Report 9258975 (Version 1)
Quarter: 2013Q2

REPORT INFORMATION
  Report Type: Spontaneous
  Country: DE (occurrence: DE)
  Receive Date: 20130426
  Receipt Date: 20130426
  Transmission Date: 20140414
  Serious: Yes (Other)
  Sender: FDA-Public Use
  Company Number: DE-BRISTOL-MYERS SQUIBB COMPANY-18816447

PATIENT
  Sex: Female

DRUGS (1)
  1. IPILIMUMAB [Suspect]

REACTIONS (1)
  - Vascular encephalopathy [Unknown]
